FAERS Safety Report 12148494 (Version 1)
Quarter: 2016Q1

REPORT INFORMATION
  Report Type: Spontaneous
  Country: HR (occurrence: HR)
  Receive Date: 20160304
  Receipt Date: 20160304
  Transmission Date: 20160526
  Serious: Yes (Death, Life-Threatening, Hospitalization, Other)
  Sender: FDA-Public Use
  Company Number: HR-KADMON PHARMACEUTICALS, LLC-KAD201603-000809

PATIENT
  Age: 60 Year
  Sex: Female

DRUGS (3)
  1. RIBAVIRIN. [Suspect]
     Active Substance: RIBAVIRIN
     Indication: CHRONIC HEPATITIS C
     Route: 048
  2. VIEKIRAX FILM COATED TABLET [Suspect]
     Active Substance: OMBITASVIR\PARITAPREVIR\RITONAVIR
     Indication: CHRONIC HEPATITIS C
     Route: 048
  3. EXVIERA FILM COATED TABLET [Suspect]
     Active Substance: DASABUVIR SODIUM MONOHYDRATE
     Indication: CHRONIC HEPATITIS C
     Route: 048

REACTIONS (7)
  - Head injury [Unknown]
  - Cerebral haemorrhage [Fatal]
  - Seizure [Unknown]
  - Dizziness [Unknown]
  - Nausea [Unknown]
  - Skull fracture [Unknown]
  - Fall [Unknown]

NARRATIVE: CASE EVENT DATE: 201602
